FAERS Safety Report 6704202-0 (Version None)
Quarter: 2010Q2

REPORT INFORMATION
  Report Type: 
  Country: None (occurrence: None)
  Receive Date: 20100428
  Receipt Date: 20100421
  Transmission Date: 20101027
  Serious: Yes (Life-Threatening, Hospitalization)
  Sender: FDA-Public Use
  Company Number: TPA2010A00310

PATIENT
  Age: 63 Year
  Sex: Female
  Weight: 91.6266 kg

DRUGS (16)
  1. ACTOS [Suspect]
     Indication: TYPE 2 DIABETES MELLITUS
     Dosage: 15 MG, 1 IN 1 D, PER ORAL
     Route: 048
     Dates: end: 20091201
  2. NEURONTIN [Concomitant]
  3. EFFEXOR [Concomitant]
  4. REMERON [Concomitant]
  5. DEPAKOTE [Concomitant]
  6. GLIPIZIDE [Concomitant]
  7. SMVASTATIN (SIMVASTATIN) [Concomitant]
  8. PAROXETINE HCL (PAROXETINE HYDROCHLORIDE) [Concomitant]
  9. METOPROLOL TARTRATE [Concomitant]
  10. LISINOPRIL [Concomitant]
  11. FIORICET [Concomitant]
  12. TRAZODONE HCL [Concomitant]
  13. ASPIRIN [Concomitant]
  14. NEXIUM [Concomitant]
  15. SEROQUEL [Concomitant]
  16. XANAX [Concomitant]

REACTIONS (19)
  - AMNESIA [None]
  - AURA [None]
  - BIPOLAR DISORDER [None]
  - BURNING SENSATION [None]
  - CARDIAC FAILURE CONGESTIVE [None]
  - CHEST PAIN [None]
  - CHRONIC OBSTRUCTIVE PULMONARY DISEASE [None]
  - CONFUSIONAL STATE [None]
  - DIABETES MELLITUS [None]
  - DYSPNOEA [None]
  - ESSENTIAL HYPERTENSION [None]
  - JOINT SWELLING [None]
  - LIFE SUPPORT [None]
  - LOSS OF CONSCIOUSNESS [None]
  - MIGRAINE [None]
  - OEDEMA [None]
  - RENAL FAILURE [None]
  - SLEEP DISORDER [None]
  - WEIGHT INCREASED [None]
